FAERS Safety Report 24769512 (Version 1)
Quarter: 2024Q4

REPORT INFORMATION
  Report Type: Spontaneous
  Country: US (occurrence: US)
  Receive Date: 20241224
  Receipt Date: 20241224
  Transmission Date: 20250115
  Serious: No
  Sender: BIOVITRUM
  Company Number: US-BIOVITRUM-2024-US-016222

PATIENT
  Age: 68 Year
  Sex: Male

DRUGS (4)
  1. VONJO [Suspect]
     Active Substance: PACRITINIB
     Indication: Myeloproliferative neoplasm
     Dosage: TWICE DAILY
     Route: 048
     Dates: start: 20241212
  2. VITAMINS [Concomitant]
     Active Substance: VITAMINS
     Indication: Product used for unknown indication
  3. IRBESARTAN [Concomitant]
     Active Substance: IRBESARTAN
     Indication: Product used for unknown indication
  4. VERAPAMIL [Concomitant]
     Active Substance: VERAPAMIL HYDROCHLORIDE
     Indication: Product used for unknown indication

REACTIONS (12)
  - Diarrhoea [Unknown]
  - Hypotension [Unknown]
  - Cough [Unknown]
  - Salivary hypersecretion [Unknown]
  - Dizziness [Unknown]
  - Balance disorder [Unknown]
  - Dry throat [Unknown]
  - Sleep disorder [Unknown]
  - Decreased appetite [Unknown]
  - Taste disorder [Unknown]
  - Peripheral swelling [Unknown]
  - Condition aggravated [Unknown]
